FAERS Safety Report 23696072 (Version 2)
Quarter: 2024Q4

REPORT INFORMATION
  Report Type: Report from Study
  Country: JP (occurrence: JP)
  Receive Date: 20240402
  Receipt Date: 20241008
  Transmission Date: 20250114
  Serious: Yes (Other)
  Sender: NOVARTIS
  Company Number: JP-002147023-NVSJ2022JP093503

PATIENT
  Age: 10 Year
  Sex: Male
  Weight: 29.3 kg

DRUGS (3)
  1. KYMRIAH [Suspect]
     Active Substance: TISAGENLECLEUCEL
     Indication: Acute lymphocytic leukaemia
     Dosage: UNK, FULL DOSE TOTAL CELL ADMINISTERED: 1.3X10^8
     Route: 041
     Dates: start: 20210708, end: 20210708
  2. CYCLOPHOSPHAMIDE [Concomitant]
     Active Substance: CYCLOPHOSPHAMIDE
     Indication: Chemotherapy
     Dosage: 120 MG/M2
     Route: 065
     Dates: start: 20210702
  3. FLUDARABINE PHOSPHATE [Concomitant]
     Active Substance: FLUDARABINE PHOSPHATE
     Indication: Chemotherapy
     Dosage: 120 MG/M2
     Route: 065
     Dates: start: 20210702

REACTIONS (9)
  - Cytokine release syndrome [Recovered/Resolved]
  - Hypotension [Unknown]
  - Pyrexia [Unknown]
  - Hypogammaglobulinaemia [Not Recovered/Not Resolved]
  - Lymphocyte count decreased [Unknown]
  - Bronchopulmonary aspergillosis [Unknown]
  - Staphylococcal bacteraemia [Unknown]
  - Platelet count decreased [Unknown]
  - Acute lymphocytic leukaemia recurrent [Unknown]

NARRATIVE: CASE EVENT DATE: 20210709
